FAERS Safety Report 16006011 (Version 1)
Quarter: 2019Q1

REPORT INFORMATION
  Report Type: Spontaneous
  Country: US (occurrence: US)
  Receive Date: 20190226
  Receipt Date: 20190226
  Transmission Date: 20190418
  Serious: Yes (Other)
  Sender: FDA-Public Use
  Company Number: PHEH2019US008321

PATIENT
  Age: 72 Year
  Sex: Male

DRUGS (1)
  1. TASIGNA [Suspect]
     Active Substance: NILOTINIB
     Indication: CHRONIC MYELOID LEUKAEMIA
     Dosage: UNK UNK, BID
     Route: 048
     Dates: start: 20150716

REACTIONS (28)
  - Right atrial enlargement [Unknown]
  - Paraesthesia [Unknown]
  - Neck pain [Unknown]
  - Adenocarcinoma [Unknown]
  - Prostate cancer [Unknown]
  - Renal failure [Unknown]
  - Left ventricular hypertrophy [Unknown]
  - Dystrophic calcification [Unknown]
  - Dyspepsia [Unknown]
  - Tricuspid valve incompetence [Unknown]
  - Coronary artery disease [Unknown]
  - Hypercholesterolaemia [Unknown]
  - Transient ischaemic attack [Unknown]
  - Myocardial infarction [Unknown]
  - Facet joint syndrome [Unknown]
  - Hypoaesthesia [Unknown]
  - Aortic valve incompetence [Unknown]
  - Peripheral vascular disorder [Unknown]
  - Right ventricular enlargement [Unknown]
  - Aortic dilatation [Unknown]
  - Gastrooesophageal reflux disease [Unknown]
  - Intervertebral disc degeneration [Unknown]
  - Mitral valve incompetence [Unknown]
  - Second primary malignancy [Unknown]
  - Osteoarthritis [Unknown]
  - Essential hypertension [Unknown]
  - Cough [Unknown]
  - Left atrial enlargement [Unknown]

NARRATIVE: CASE EVENT DATE: 20151202
